FAERS Safety Report 25079816 (Version 1)
Quarter: 2025Q1

REPORT INFORMATION
  Report Type: Spontaneous
  Country: SA (occurrence: SA)
  Receive Date: 20250314
  Receipt Date: 20250314
  Transmission Date: 20250409
  Serious: Yes (Life-Threatening, Other)
  Sender: PFIZER
  Company Number: SA-PFIZER INC-202500056471

PATIENT
  Age: 38 Week
  Sex: Male

DRUGS (3)
  1. ALPROSTADIL [Suspect]
     Active Substance: ALPROSTADIL
     Indication: Congenital pulmonary artery anomaly
  2. ALPROSTADIL [Suspect]
     Active Substance: ALPROSTADIL
     Indication: Cyanosis
  3. ALPROSTADIL [Suspect]
     Active Substance: ALPROSTADIL

REACTIONS (2)
  - Renal injury [Recovered/Resolved]
  - Liver injury [Recovered/Resolved]
